FAERS Safety Report 6543528-0 (Version None)
Quarter: 2010Q1

REPORT INFORMATION
  Report Type: 
  Country: None (occurrence: None)
  Receive Date: 20100120
  Receipt Date: 20100115
  Transmission Date: 20100710
  Serious: Yes (Hospitalization)
  Sender: FDA-Public Use
  Company Number: Z0000830D

PATIENT
  Age: 59 Year
  Sex: Female
  Weight: 105 kg

DRUGS (8)
  1. PAZOPANIB [Suspect]
     Indication: RENAL CELL CARCINOMA
     Dosage: 800MG PER DAY
     Route: 048
     Dates: start: 20090224
  2. ONDANSETRON HCL [Concomitant]
     Indication: NAUSEA
     Dosage: 4MG FOUR TIMES PER DAY
     Route: 042
     Dates: start: 20090510, end: 20090513
  3. METOCLOPRAMIDE HYDROCHLORIDE [Concomitant]
     Indication: NAUSEA
     Dosage: 10MG FOUR TIMES PER DAY
     Route: 042
     Dates: start: 20090510, end: 20090513
  4. DALTEPARIN SODIUM [Concomitant]
     Dosage: 5000UNIT PER DAY
     Route: 058
     Dates: start: 20090510, end: 20090513
  5. MORPHINE SULFATE [Concomitant]
     Indication: PAIN
     Dosage: 2MG CONTINUOUS
     Route: 042
     Dates: start: 20090510, end: 20090513
  6. PROCHLORPERAZINE MALEATE [Concomitant]
     Dosage: 10MG THREE TIMES PER DAY
     Route: 048
     Dates: start: 20090510, end: 20090513
  7. FOLIC ACID [Concomitant]
     Indication: SUPPLEMENTATION THERAPY
     Dosage: 1MG PER DAY
     Route: 048
     Dates: start: 20090510
  8. TRIAMTERENE AND HYDROCHLOROTHIAZIDE [Concomitant]
     Indication: HYPERTENSION
     Dosage: 1TAB PER DAY
     Route: 048
     Dates: start: 20090510

REACTIONS (5)
  - ALANINE AMINOTRANSFERASE INCREASED [None]
  - ASPARTATE AMINOTRANSFERASE INCREASED [None]
  - BLOOD ALKALINE PHOSPHATASE INCREASED [None]
  - BLOOD BILIRUBIN INCREASED [None]
  - CHOLELITHIASIS [None]
